FAERS Safety Report 4886780-X (Version None)
Quarter: 2006Q1

REPORT INFORMATION
  Report Type: 
  Country: None (occurrence: None)
  Receive Date: 20060119
  Receipt Date: 20060103
  Transmission Date: 20060701
  Serious: Yes (Hospitalization, Other)
  Sender: FDA-Public Use
  Company Number: 2006BI000555

PATIENT
  Age: 82 Year
  Sex: Male
  Weight: 71 kg

DRUGS (15)
  1. ZEVALIN [Suspect]
     Indication: B-CELL LYMPHOMA
     Dosage: 1X; IV
     Route: 042
     Dates: start: 20040630, end: 20040630
  2. ZEVALIN [Suspect]
     Indication: B-CELL LYMPHOMA
     Dosage: 1X; IV
     Route: 042
  3. CYCLOPHOSPHAMIDE [Concomitant]
  4. EPIRUBICIN [Concomitant]
  5. ONCOVIN [Concomitant]
  6. PREDNISONE [Concomitant]
  7. CHLORAMBUCIL [Concomitant]
  8. FLUDARABINE [Concomitant]
  9. NOVANTRONE [Concomitant]
  10. MABTHERA [Concomitant]
  11. SOLU-MEDROL [Concomitant]
  12. FLUDARABINE [Concomitant]
  13. NOVANTRONE [Concomitant]
  14. MABTHERA [Concomitant]
  15. CORTICOSTEROIDS [Concomitant]

REACTIONS (3)
  - METASTASES TO LIVER [None]
  - STREPTOCOCCAL INFECTION [None]
  - SUBACUTE ENDOCARDITIS [None]
